FAERS Safety Report 6112013-2 (Version None)
Quarter: 2009Q1

REPORT INFORMATION
  Report Type: 
  Country: None (occurrence: None)
  Receive Date: 20090310
  Receipt Date: 20090224
  Transmission Date: 20090719
  Serious: Yes (Other)
  Sender: FDA-Public Use
  Company Number: 1000005029

PATIENT
  Age: 61 Year
  Sex: Male

DRUGS (5)
  1. NEBIVOLOL HCL [Suspect]
     Indication: CARDIAC FAILURE
     Dosage: 10 MG (10 MG,L IN 1 D), ORAL
     Route: 048
     Dates: start: 20080603
  2. LANOXIN [Concomitant]
  3. BURINEX [Concomitant]
  4. ALDACTONE [Concomitant]
  5. PERINDOPRIL ERBUMINE [Concomitant]

REACTIONS (1)
  - VENTRICULAR TACHYCARDIA [None]
